FAERS Safety Report 17744986 (Version 1)
Quarter: 2020Q2

REPORT INFORMATION
  Report Type: Spontaneous
  Country: CL (occurrence: CL)
  Receive Date: 20200505
  Receipt Date: 20200505
  Transmission Date: 20200714
  Serious: Yes (Hospitalization, Other)
  Sender: FDA-Public Use
  Company Number: CL-SA-2018SA075969

PATIENT
  Age: 1 Year
  Sex: Male

DRUGS (4)
  1. ALDURAZYME [Suspect]
     Active Substance: LARONIDASE
     Indication: MUCOPOLYSACCHARIDOSIS I
     Dosage: 2 DF,QW
     Route: 041
     Dates: start: 20171227, end: 201809
  2. CHLORPHENAMINE [Concomitant]
     Active Substance: CHLORPHENIRAMINE MALEATE
     Indication: PREMEDICATION
     Dosage: 2 MG
     Route: 048
  3. ALDURAZYME [Suspect]
     Active Substance: LARONIDASE
     Dosage: 2 DF, QW
     Route: 041
  4. PARACETAMOL [Concomitant]
     Active Substance: ACETAMINOPHEN
     Indication: PREMEDICATION
     Dosage: 100 MG
     Route: 048

REACTIONS (6)
  - Oropharyngeal pain [Unknown]
  - Unevaluable event [Unknown]
  - Clostridium difficile infection [Unknown]
  - Pyrexia [Unknown]
  - Pneumonia [Recovering/Resolving]
  - Cough [Unknown]
